FAERS Safety Report 5068427-5 (Version None)
Quarter: 2006Q3

REPORT INFORMATION
  Report Type: 
  Country: None (occurrence: None)
  Receive Date: 20060802
  Receipt Date: 20050922
  Transmission Date: 20061208
  Serious: No
  Sender: FDA-Public Use
  Company Number: US-BRISTOL-MYERS SQUIBB COMPANY-13119375

PATIENT
  Age: 64 Year
  Sex: Female

DRUGS (6)
  1. COUMADIN [Suspect]
     Indication: MITRAL VALVE REPLACEMENT
     Route: 048
     Dates: end: 20050919
  2. DEPAKOTE [Concomitant]
  3. DIGOXIN [Concomitant]
  4. DILTIAZEM HCL [Concomitant]
  5. PREVACID [Concomitant]
  6. TRANSDERM [Concomitant]

REACTIONS (1)
  - INTERNATIONAL NORMALISED RATIO INCREASED [None]
